FAERS Safety Report 7310880-8 (Version None)
Quarter: 2011Q1

REPORT INFORMATION
  Report Type: 
  Country: None (occurrence: None)
  Receive Date: 20110224
  Receipt Date: 20110211
  Transmission Date: 20110831
  Serious: Yes (Hospitalization)
  Sender: FDA-Public Use
  Company Number: AU-JNJFOC-20110204042

PATIENT
  Sex: Female
  Weight: 72.9 kg

DRUGS (7)
  1. DOXORUBICIN HYDROCHLORIDE [Suspect]
     Indication: OVARIAN CANCER
     Route: 042
  2. PARACETAMOL [Concomitant]
     Indication: PYREXIA
     Dosage: AS REQUIRED
     Route: 065
  3. MIRTAZAPINE [Concomitant]
     Indication: DEPRESSION
     Route: 065
  4. CALCIUM SANDOZ [Concomitant]
     Indication: ROUTINE HEALTH MAINTENANCE
     Route: 065
  5. DEXAMETHASONE PHOSPHATE [Concomitant]
     Indication: PROPHYLAXIS OF NAUSEA AND VOMITING
     Route: 065
  6. RABEPRAZOLE SODIUM [Concomitant]
     Indication: OROPHARYNGEAL BLISTERING
     Dosage: AS REQUIRED
     Route: 065
  7. GRANISETRON HCL [Concomitant]
     Indication: PROPHYLAXIS OF NAUSEA AND VOMITING
     Route: 042

REACTIONS (5)
  - PANCYTOPENIA [None]
  - ANAEMIA [None]
  - CHILLS [None]
  - URINARY TRACT DISORDER [None]
  - FEBRILE NEUTROPENIA [None]
